FAERS Safety Report 8469256-2 (Version None)
Quarter: 2012Q2

REPORT INFORMATION
  Report Type: 
  Country: None (occurrence: None)
  Receive Date: 20120626
  Receipt Date: 20120611
  Transmission Date: 20120825
  Serious: Yes (Congenital Anomaly)
  Sender: FDA-Public Use
  Company Number: DE-TEVA-342661GER

PATIENT
  Age: 0 Year
  Sex: Male

DRUGS (1)
  1. FLUOXETINE HCL [Suspect]
     Route: 064

REACTIONS (1)
  - POTTER'S SYNDROME [None]
